FAERS Safety Report 7683338-4 (Version None)
Quarter: 2011Q3

REPORT INFORMATION
  Report Type: 
  Country: None (occurrence: None)
  Receive Date: 20110815
  Receipt Date: 20110720
  Transmission Date: 20111222
  Serious: No
  Sender: FDA-Public Use
  Company Number: US-BAYER-2011-058799

PATIENT
  Age: 33 Year
  Sex: Male

DRUGS (3)
  1. BETASERON [Suspect]
     Indication: MULTIPLE SCLEROSIS
     Dosage: 2 MIU, QOD
     Route: 058
     Dates: start: 20110701
  2. BETASERON [Suspect]
     Dosage: 6 MIU, QOD
     Route: 058
  3. BETASERON [Suspect]
     Dosage: 4 MIU, QOD
     Route: 058

REACTIONS (6)
  - MYALGIA [None]
  - FATIGUE [None]
  - MALAISE [None]
  - PAIN [None]
  - HYPERSOMNIA [None]
  - NASAL CONGESTION [None]
